FAERS Safety Report 5335660-4 (Version None)
Quarter: 2007Q2

REPORT INFORMATION
  Report Type: 
  Country: None (occurrence: None)
  Receive Date: 20070322
  Receipt Date: 20061214
  Transmission Date: 20071010
  Serious: No
  Sender: FDA-Public Use
  Company Number: 2006US002911

PATIENT
  Age: 74 Year
  Sex: Male

DRUGS (10)
  1. VESLCARE (SOLIFENACIN) TABLET, 5MG [Suspect]
     Indication: HYPERTONIC BLADDER
     Dosage: 5 MG, ORAL
     Route: 048
     Dates: start: 20061128, end: 20061212
  2. ATENOLOL [Concomitant]
  3. DIOVAN [Concomitant]
  4. PROSCAR [Concomitant]
  5. FLOMAX [Concomitant]
  6. DICYCLOMINE [Concomitant]
  7. PREVACID [Concomitant]
  8. NEURTONTIN (GABAPENTIN) [Concomitant]
  9. ARICEPT (DONEPEIL HYDROCHLORIDE) [Concomitant]
  10. ENABLEX [Concomitant]

REACTIONS (1)
  - TREMOR [None]
